FAERS Safety Report 13585291 (Version 2)
Quarter: 2017Q2

REPORT INFORMATION
  Report Type: Spontaneous
  Country: US (occurrence: US)
  Receive Date: 20170526
  Receipt Date: 20170606
  Transmission Date: 20170830
  Serious: Yes (Disabling)
  Sender: FDA-Public Use
  Company Number: US-009507513-1705USA008302

PATIENT
  Age: 62 Year
  Sex: Female

DRUGS (6)
  1. STERILE DILUENT [Suspect]
     Active Substance: WATER
     Indication: PROPHYLAXIS
     Dosage: UNK
     Dates: start: 201504
  2. SYNTHROID [Concomitant]
     Active Substance: LEVOTHYROXINE SODIUM
     Dosage: UNK
  3. VITAMIN B (UNSPECIFIED) [Concomitant]
     Dosage: UNK
  4. ZOSTAVAX [Suspect]
     Active Substance: VARICELLA-ZOSTER VIRUS STRAIN OKA/MERCK LIVE ANTIGEN
     Indication: PROPHYLAXIS
     Route: 058
     Dates: start: 201504, end: 201504
  5. ESTROGEN NOS [Concomitant]
     Active Substance: ESTROGENS
     Dosage: UNK
  6. IRON (UNSPECIFIED) [Concomitant]
     Active Substance: IRON
     Dosage: UNK

REACTIONS (2)
  - Herpes zoster [Not Recovered/Not Resolved]
  - Inflammation [Not Recovered/Not Resolved]

NARRATIVE: CASE EVENT DATE: 201705
